FAERS Safety Report 22280694 (Version 1)
Quarter: 2023Q2

REPORT INFORMATION
  Report Type: Spontaneous
  Country: None (occurrence: US)
  Receive Date: 20230503
  Receipt Date: 20230503
  Transmission Date: 20230722
  Serious: No
  Sender: FDA-Public Use
  Company Number: US-Intersect Ent, Inc.-2141103

PATIENT
  Age: 65 Year
  Sex: Male

DRUGS (1)
  1. SINUVA [Suspect]
     Active Substance: MOMETASONE FUROATE
     Indication: Nasal polyps
     Route: 006
     Dates: start: 20221118

REACTIONS (3)
  - Hyperlipidaemia [Not Recovered/Not Resolved]
  - Rhinorrhoea [Not Recovered/Not Resolved]
  - Nasal crusting [Not Recovered/Not Resolved]

NARRATIVE: CASE EVENT DATE: 20221202
